FAERS Safety Report 10447451 (Version 1)
Quarter: 2014Q3

REPORT INFORMATION
  Report Type: Spontaneous
  Country: AU (occurrence: AU)
  Receive Date: 20140911
  Receipt Date: 20140911
  Transmission Date: 20150326
  Serious: Yes (Other)
  Sender: FDA-Public Use
  Company Number: AU-JNJFOC-20140902953

PATIENT
  Age: 56 Year
  Sex: Male

DRUGS (3)
  1. FENTANYL. [Suspect]
     Active Substance: FENTANYL
     Indication: PAIN
     Route: 065
  2. VALIUM [Suspect]
     Active Substance: DIAZEPAM
     Indication: PAIN
     Route: 065
  3. ENDONE [Suspect]
     Active Substance: OXYCODONE HYDROCHLORIDE
     Indication: PAIN
     Route: 065

REACTIONS (8)
  - Suicidal ideation [Recovering/Resolving]
  - Dependence [Unknown]
  - Depression [Not Recovered/Not Resolved]
  - Vomiting [Unknown]
  - Disorientation [Unknown]
  - Constipation [Unknown]
  - Nausea [Unknown]
  - Withdrawal syndrome [Unknown]
